FAERS Safety Report 17881002 (Version 1)
Quarter: 2020Q2

REPORT INFORMATION
  Report Type: Spontaneous
  Country: US (occurrence: US)
  Receive Date: 20200610
  Receipt Date: 20200610
  Transmission Date: 20200714
  Serious: Yes (Life-Threatening, Hospitalization, Disabling, Other)
  Sender: FDA-Public Use
  Company Number: None

PATIENT
  Age: 50 Year
  Sex: Female
  Weight: 87.75 kg

DRUGS (2)
  1. BOTOX [Suspect]
     Active Substance: ONABOTULINUMTOXINA
     Indication: MIGRAINE
  2. KYBELLA [Suspect]
     Active Substance: DEOXYCHOLIC ACID

REACTIONS (6)
  - Migraine [None]
  - Cardiac disorder [None]
  - Cerebrovascular accident [None]
  - Vision blurred [None]
  - Amnesia [None]
  - Condition aggravated [None]

NARRATIVE: CASE EVENT DATE: 20160105
